FAERS Safety Report 15103441 (Version 1)
Quarter: 2018Q3

REPORT INFORMATION
  Report Type: Spontaneous
  Country: US (occurrence: US)
  Receive Date: 20180703
  Receipt Date: 20180703
  Transmission Date: 20181010
  Serious: Yes (Death, Other)
  Sender: FDA-Public Use
  Company Number: US-ELI_LILLY_AND_COMPANY-US201806014067

PATIENT
  Age: 72 Year
  Sex: Male

DRUGS (1)
  1. CETUXIMAB. [Suspect]
     Active Substance: CETUXIMAB
     Indication: GASTROOESOPHAGEAL CANCER
     Dosage: UNK, UNKNOWN
     Route: 065

REACTIONS (6)
  - Metastases to lung [Unknown]
  - Dermatitis acneiform [Unknown]
  - Fall [Unknown]
  - Metastases to lymph nodes [Unknown]
  - Off label use [Unknown]
  - Central nervous system lesion [Fatal]
